FAERS Safety Report 16570031 (Version 4)
Quarter: 2020Q2

REPORT INFORMATION
  Report Type: Spontaneous
  Country: HR (occurrence: HR)
  Receive Date: 20190715
  Receipt Date: 20200423
  Transmission Date: 20200713
  Serious: Yes (Death, Hospitalization, Other)
  Sender: FDA-Public Use
  Company Number: HR-BRISTOL-MYERS SQUIBB COMPANY-BMS-2019-066963

PATIENT
  Age: 46 Year
  Sex: Female

DRUGS (6)
  1. ASPIRIN [ACETYLSALICYLIC ACID] [Interacting]
     Active Substance: ASPIRIN
     Indication: PRODUCT USED FOR UNKNOWN INDICATION
     Dosage: 100 MILLIGRAM, QD
     Route: 065
  2. CARVEDILOL. [Concomitant]
     Active Substance: CARVEDILOL
     Indication: PRODUCT USED FOR UNKNOWN INDICATION
     Route: 065
  3. WARFARIN SODIUM. [Suspect]
     Active Substance: WARFARIN SODIUM
     Indication: CARDIAC VALVE DISEASE
     Route: 065
  4. RAMIPRIL. [Concomitant]
     Active Substance: RAMIPRIL
     Indication: PRODUCT USED FOR UNKNOWN INDICATION
     Dosage: 2.5 MILLIGRAM, QD
     Route: 065
  5. WARFARIN SODIUM. [Interacting]
     Active Substance: WARFARIN SODIUM
     Indication: ANTICOAGULANT THERAPY
     Route: 065
  6. CARVEDILOL. [Concomitant]
     Active Substance: CARVEDILOL
     Indication: PRODUCT USED FOR UNKNOWN INDICATION
     Dosage: 6.25 MILLIGRAM, BID
     Route: 065

REACTIONS (6)
  - Nephropathy [Fatal]
  - Haemoptysis [Unknown]
  - Haematuria [Unknown]
  - Acute kidney injury [Fatal]
  - International normalised ratio increased [Recovered/Resolved]
  - Labelled drug-drug interaction medication error [Unknown]
